FAERS Safety Report 6793143-9 (Version None)
Quarter: 2010Q2

REPORT INFORMATION
  Report Type: 
  Country: None (occurrence: None)
  Receive Date: 20100624
  Receipt Date: 20090622
  Transmission Date: 20101027
  Serious: Yes (Death)
  Sender: FDA-Public Use
  Company Number: US-MYLANLABS-2009S1009953

PATIENT
  Age: 61 Year
  Sex: Male

DRUGS (11)
  1. CLOZAPINE [Suspect]
     Indication: SCHIZOPHRENIA
     Route: 048
     Dates: end: 20090101
  2. TEMAZEPAM [Concomitant]
     Route: 048
  3. HYDROCODONE [Concomitant]
     Route: 048
  4. LANTUS [Concomitant]
  5. METOPROLOL [Concomitant]
     Route: 048
  6. SEROQUEL [Concomitant]
     Dosage: 1000-1200MG
     Route: 048
  7. PAXIL CR [Concomitant]
     Route: 048
  8. POTASSIUM [Concomitant]
     Route: 048
  9. LISINOPRIL [Concomitant]
     Route: 048
  10. ABILIFY [Concomitant]
  11. KLONOPIN [Concomitant]

REACTIONS (2)
  - CARDIAC FAILURE CONGESTIVE [None]
  - CAROTID ARTERIOSCLEROSIS [None]
